FAERS Safety Report 9468892 (Version 2)
Quarter: 2013Q3

REPORT INFORMATION
  Report Type: Spontaneous
  Country: US (occurrence: US)
  Receive Date: 20130821
  Receipt Date: 20130829
  Transmission Date: 20140515
  Serious: Yes (Other)
  Sender: FDA-Public Use
  Company Number: US-BAYER-2013-100831

PATIENT
  Age: 84 Year
  Sex: Female
  Weight: 31.29 kg

DRUGS (4)
  1. BAYER GENUINE ASPIRIN ORIGINAL STRENGTH [Suspect]
     Indication: ISCHAEMIC HEART DISEASE PROPHYLAXIS
     Dosage: 1 DF, ONCE
     Route: 048
     Dates: start: 20130818, end: 20130818
  2. BAYER GENUINE ASPIRIN ORIGINAL STRENGTH [Suspect]
     Indication: HEART RATE IRREGULAR
  3. BAYER GENUINE ASPIRIN ORIGINAL STRENGTH [Suspect]
     Indication: CEREBROVASCULAR ACCIDENT PROPHYLAXIS
  4. BAYER CHEWABLE LOW DOSE BABY ASPIRIN TABLET ORANGE [Concomitant]
     Indication: ISCHAEMIC HEART DISEASE PROPHYLAXIS

REACTIONS (2)
  - Haematemesis [Recovered/Resolved]
  - Off label use [None]
